FAERS Safety Report 16700486 (Version 2)
Quarter: 2019Q3

REPORT INFORMATION
  Report Type: Spontaneous
  Country: RO (occurrence: RO)
  Receive Date: 20190814
  Receipt Date: 20190814
  Transmission Date: 20191004
  Serious: Yes (Other)
  Sender: FDA-Public Use
  Company Number: RO-SUN PHARMACEUTICAL INDUSTRIES LTD-2019RR-217589

PATIENT
  Age: 32 Year
  Sex: Male

DRUGS (6)
  1. GEMCITABINE. [Suspect]
     Active Substance: GEMCITABINE
     Indication: HODGKIN^S DISEASE
     Dosage: SIX COURSES () CYCLICAL
     Route: 065
     Dates: start: 201801, end: 201804
  2. CYTARABINE. [Suspect]
     Active Substance: CYTARABINE
     Indication: HODGKIN^S DISEASE
     Dosage: ONE COURSE ();  CYCLICAL
     Route: 065
     Dates: start: 2017, end: 2017
  3. DOXORUBICIN LIPOSOME [Suspect]
     Active Substance: DOXORUBICIN
     Indication: HODGKIN^S DISEASE
     Dosage: SIX COURSES () ; CYCLICAL
     Route: 065
     Dates: start: 201801, end: 201804
  4. DEXAMETHASONE. [Suspect]
     Active Substance: DEXAMETHASONE
     Indication: HODGKIN^S DISEASE
     Dosage: ONE COURSE () ; CYCLICAL
     Route: 065
     Dates: start: 2017, end: 2017
  5. VINORELBINE [Suspect]
     Active Substance: VINORELBINE TARTRATE
     Indication: HODGKIN^S DISEASE
     Dosage: SIX COURSES () ; CYCLICAL
     Route: 065
     Dates: start: 201801, end: 201804
  6. CISPLATIN. [Suspect]
     Active Substance: CISPLATIN
     Indication: HODGKIN^S DISEASE
     Dosage: ONE COURSE () ;  CYCLICAL
     Route: 065
     Dates: start: 2017, end: 2017

REACTIONS (3)
  - Therapy non-responder [Unknown]
  - Infection [Unknown]
  - Pancytopenia [Unknown]
